FAERS Safety Report 24097852 (Version 1)
Quarter: 2024Q3

REPORT INFORMATION
  Report Type: Spontaneous
  Country: IT (occurrence: IT)
  Receive Date: 20240716
  Receipt Date: 20240716
  Transmission Date: 20241016
  Serious: Yes (Other)
  Sender: TEVA
  Company Number: None

PATIENT
  Age: 58 Year
  Sex: Female

DRUGS (1)
  1. GEMCITABINE [Suspect]
     Active Substance: GEMCITABINE
     Indication: Ovarian cancer
     Route: 042
     Dates: start: 20231113, end: 20231113

REACTIONS (7)
  - Hyperkalaemia [Not Recovered/Not Resolved]
  - Hypertransaminasaemia [Not Recovered/Not Resolved]
  - Transferrin [Not Recovered/Not Resolved]
  - Blood alkaline phosphatase increased [Not Recovered/Not Resolved]
  - Blood albumin decreased [Not Recovered/Not Resolved]
  - Anaemia [Not Recovered/Not Resolved]
  - Iron deficiency [Not Recovered/Not Resolved]

NARRATIVE: CASE EVENT DATE: 20231122
